FAERS Safety Report 7027287-3 (Version None)
Quarter: 2010Q3

REPORT INFORMATION
  Report Type: 
  Country: None (occurrence: None)
  Receive Date: 20100930
  Receipt Date: 20100923
  Transmission Date: 20110219
  Serious: Yes (Disabling, Congenital Anomaly)
  Sender: FDA-Public Use
  Company Number: 2002-03-2630

PATIENT
  Age: 1 Day
  Sex: Male
  Weight: 2.3 kg

DRUGS (2)
  1. DESLORATADINE [Suspect]
     Indication: PREGNANCY
     Dosage: 5 MG;QD;TRPL
     Route: 064
     Dates: start: 20020322, end: 20020327
  2. ELAVIL [Suspect]
     Indication: PREGNANCY
     Dosage: 10 MG;QD;TRPL
     Route: 064

REACTIONS (4)
  - CRYPTORCHISM [None]
  - DRUG EXPOSURE DURING PREGNANCY [None]
  - PREGNANCY [None]
  - UMBILICAL HERNIA [None]
